FAERS Safety Report 15833682 (Version 2)
Quarter: 2019Q1

REPORT INFORMATION
  Report Type: Report from Study
  Country: None (occurrence: US)
  Receive Date: 20190116
  Receipt Date: 20190118
  Transmission Date: 20190417
  Serious: Yes (Hospitalization, Other)
  Sender: FDA-Public Use
  Company Number: US-ABBVIE-19S-163-2624009-00

PATIENT
  Age: 70 Year
  Sex: Female

DRUGS (1)
  1. CREON [Suspect]
     Active Substance: PANCRELIPASE AMYLASE\PANCRELIPASE LIPASE\PANCRELIPASE PROTEASE
     Indication: PRODUCT USED FOR UNKNOWN INDICATION
     Route: 048

REACTIONS (43)
  - Adenocarcinoma pancreas [Recovered/Resolved]
  - Ileostomy closure [Unknown]
  - Intestinal resection [Unknown]
  - Urinary retention [Unknown]
  - Leukopenia [Unknown]
  - Hypertension [Unknown]
  - Hypertension [Recovered/Resolved]
  - Pancreatic carcinoma [Recovered/Resolved]
  - Gastrointestinal necrosis [Unknown]
  - Colitis ischaemic [Unknown]
  - Femur fracture [Recovered/Resolved]
  - Inappropriate antidiuretic hormone secretion [Recovered/Resolved]
  - Candida infection [Unknown]
  - Hyponatraemia [Recovered/Resolved]
  - Abscess limb [Recovered/Resolved]
  - Intestinal perforation [Unknown]
  - Umbilical hernia [Unknown]
  - Hyponatraemia [Recovered/Resolved]
  - Bacteraemia [Recovered/Resolved]
  - Obesity [Unknown]
  - Cellulitis [Recovered/Resolved]
  - Abdominal hernia [Unknown]
  - Septic shock [Unknown]
  - Urinary tract infection [Unknown]
  - Atelectasis [Unknown]
  - Cellulitis [Unknown]
  - Fall [Unknown]
  - Cardiac pacemaker insertion [Unknown]
  - Abdominal abscess [Unknown]
  - Incisional hernia [Unknown]
  - Hyponatraemia [Unknown]
  - Herpes zoster [Unknown]
  - Anaemia [Unknown]
  - Abdominal abscess [Recovered/Resolved]
  - Clostridium difficile colitis [Unknown]
  - Enterococcal infection [Unknown]
  - Decubitus ulcer [Unknown]
  - Large intestine perforation [Unknown]
  - Injury [Unknown]
  - Infarction [Unknown]
  - Bacteraemia [Unknown]
  - Enterococcal infection [Unknown]
  - Vomiting [Unknown]

NARRATIVE: CASE EVENT DATE: 20121010
